FAERS Safety Report 5158519-4 (Version None)
Quarter: 2006Q4

REPORT INFORMATION
  Report Type: 
  Country: None (occurrence: None)
  Receive Date: 20061117
  Receipt Date: 20061114
  Transmission Date: 20070319
  Serious: Yes (Hospitalization)
  Sender: FDA-Public Use
  Company Number: S06-BEL-03315-01

PATIENT
  Age: 86 Year
  Sex: Female
  Weight: 82 kg

DRUGS (6)
  1. MEMANTINE HCL [Suspect]
     Indication: APATHY
     Dosage: 5 MG QD PO
     Route: 048
     Dates: start: 20060509, end: 20060515
  2. MEMANTINE HCL [Suspect]
     Indication: APATHY
     Dosage: 5 MG QD PO
     Route: 048
     Dates: start: 20060101, end: 20060101
  3. L-THYROXINE (LEVOTHYROXINE) [Concomitant]
  4. ATORVASTATIN CALCIUM [Concomitant]
  5. ASPIRIN [Concomitant]
  6. TRAZODONE HCL [Concomitant]

REACTIONS (3)
  - CEREBRAL ATROPHY [None]
  - LEUKOARAIOSIS [None]
  - PSYCHOMOTOR HYPERACTIVITY [None]
